FAERS Safety Report 4470821-8 (Version None)
Quarter: 2004Q4

REPORT INFORMATION
  Report Type: 
  Country: None (occurrence: None)
  Receive Date: 20041005
  Receipt Date: 20040927
  Transmission Date: 20050328
  Serious: Yes (Hospitalization)
  Sender: FDA-Public Use
  Company Number: USA-2004-0016973

PATIENT
  Age: 48 Year
  Sex: Female

DRUGS (6)
  1. MS CONTIN [Suspect]
     Indication: PAIN
     Dosage: 60 MG, TID, ORAL
     Route: 048
  2. XYREM [Suspect]
     Indication: FIBROMYALGIA
     Dosage: SEE TEXT, ORAL
     Route: 048
     Dates: start: 20040828, end: 20040830
  3. XYREM [Suspect]
     Indication: HEADACHE
     Dosage: SEE TEXT, ORAL
     Route: 048
     Dates: start: 20040828, end: 20040830
  4. XYREM [Suspect]
     Indication: SLEEP DISORDER
     Dosage: SEE TEXT, ORAL
     Route: 048
     Dates: start: 20040828, end: 20040830
  5. ATENOLOL [Concomitant]
  6. ZEROSEN (COLOPHONY, STRONTIUM CHLORIDE) [Concomitant]

REACTIONS (12)
  - AGGRESSION [None]
  - BLOOD PRESSURE DECREASED [None]
  - CONFUSIONAL STATE [None]
  - CONVULSION [None]
  - DISORIENTATION [None]
  - DRUG INEFFECTIVE [None]
  - DRUG WITHDRAWAL SYNDROME [None]
  - GAIT DISTURBANCE [None]
  - HYPOVENTILATION [None]
  - OVERDOSE [None]
  - SOMNOLENCE [None]
  - TENSION [None]
